FAERS Safety Report 21252489 (Version 1)
Quarter: 2022Q3

REPORT INFORMATION
  Report Type: Other
  Country: GB (occurrence: None)
  Receive Date: 20220825
  Receipt Date: 20220825
  Transmission Date: 20221026
  Serious: Yes (Death)
  Sender: FDA-Public Use
  Company Number: GB-ROCHE-2734872

PATIENT
  Sex: Male

DRUGS (2)
  1. ESBRIET [Suspect]
     Active Substance: PIRFENIDONE
     Indication: Idiopathic pulmonary fibrosis
     Dosage: 2 TABLETS TO BE TAKEN 3 TIMES A DAY, FREQUENCY 9
     Route: 048
     Dates: start: 202010
  2. ESBRIET [Suspect]
     Active Substance: PIRFENIDONE
     Dosage: 3 TABLETS 3 TIMES A DAY
     Route: 048
     Dates: start: 20201028

REACTIONS (4)
  - Death [Fatal]
  - Treatment noncompliance [Unknown]
  - Malaise [Unknown]
  - Product dispensing error [Unknown]
